FAERS Safety Report 10765632 (Version 1)
Quarter: 2015Q1

REPORT INFORMATION
  Report Type: Report from Study
  Country: US (occurrence: US)
  Receive Date: 20150205
  Receipt Date: 20150205
  Transmission Date: 20150721
  Serious: Yes (Hospitalization, Other)
  Sender: FDA-Public Use
  Company Number: US-ELI_LILLY_AND_COMPANY-US201502000623

PATIENT
  Age: 59 Year
  Sex: Female

DRUGS (9)
  1. ATOMOXETINE HYDROCHLORIDE. [Suspect]
     Active Substance: ATOMOXETINE HYDROCHLORIDE
     Dosage: 80 MG, QD
     Route: 065
     Dates: start: 201411
  2. PROPRANOLOL                        /00030002/ [Concomitant]
     Dosage: 120 MG, QD
     Route: 065
  3. BENZONATATE. [Concomitant]
     Active Substance: BENZONATATE
     Dosage: UNK, UNKNOWN
     Route: 065
  4. ATOMOXETINE HYDROCHLORIDE. [Suspect]
     Active Substance: ATOMOXETINE HYDROCHLORIDE
     Dosage: 60 MG, QD
     Route: 065
  5. ATOMOXETINE HYDROCHLORIDE. [Suspect]
     Active Substance: ATOMOXETINE HYDROCHLORIDE
     Indication: ATTENTION DEFICIT/HYPERACTIVITY DISORDER
     Dosage: 40 MG, QD
     Route: 065
  6. ATOMOXETINE HYDROCHLORIDE. [Suspect]
     Active Substance: ATOMOXETINE HYDROCHLORIDE
     Dosage: 40 MG, QD
     Dates: end: 20150130
  7. ASPIRIN                            /00002701/ [Concomitant]
     Active Substance: ASPIRIN
     Dosage: 325 MG, QD
     Route: 065
  8. HYDROCODONE [Concomitant]
     Active Substance: HYDROCODONE
     Dosage: UNK, UNKNOWN
     Route: 065
  9. PROPRANOLOL                        /00030002/ [Concomitant]
     Indication: HYPERTENSION
     Dosage: 25 MG, QD
     Route: 065

REACTIONS (19)
  - Hyperthyroidism [Not Recovered/Not Resolved]
  - Joint injury [Unknown]
  - Fall [Unknown]
  - Arthralgia [Not Recovered/Not Resolved]
  - Emotional poverty [Unknown]
  - Hip fracture [Not Recovered/Not Resolved]
  - Abasia [Unknown]
  - Dyspnoea [Unknown]
  - Agitation [Unknown]
  - Personality change [Unknown]
  - Headache [Unknown]
  - Dizziness [Unknown]
  - Heart rate increased [Unknown]
  - Decreased interest [Unknown]
  - Atrial fibrillation [Unknown]
  - Spinal compression fracture [Unknown]
  - Hypertension [Unknown]
  - Disturbance in attention [Unknown]
  - Sleep disorder [Unknown]

NARRATIVE: CASE EVENT DATE: 201403
